FAERS Safety Report 10235420 (Version 1)
Quarter: 2014Q2

REPORT INFORMATION
  Report Type: Spontaneous
  Country: GB (occurrence: GB)
  Receive Date: 20140613
  Receipt Date: 20140613
  Transmission Date: 20141212
  Serious: Yes (Other)
  Sender: FDA-Public Use
  Company Number: GB-ASTRAZENECA-2014SE39891

PATIENT
  Age: 28 Year
  Sex: Male

DRUGS (6)
  1. SEROQUEL XL [Suspect]
     Indication: DEPRESSED MOOD
     Route: 048
     Dates: start: 20130401
  2. GABAPENTIN [Concomitant]
  3. OXYBUTYNIN [Concomitant]
  4. PARACETAMOL [Concomitant]
  5. PROPANOL [Concomitant]
  6. TRAMADOL HYDROCHLORIDE [Concomitant]

REACTIONS (2)
  - Condition aggravated [Not Recovered/Not Resolved]
  - Dyskinesia [Not Recovered/Not Resolved]
